FAERS Safety Report 10129106 (Version 3)
Quarter: 2014Q2

REPORT INFORMATION
  Report Type: Spontaneous
  Country: US (occurrence: US)
  Receive Date: 20140428
  Receipt Date: 20140619
  Transmission Date: 20141212
  Serious: Yes (Other)
  Sender: FDA-Public Use
  Company Number: US-PFIZER INC-2014111852

PATIENT
  Age: 13 Year
  Sex: Male
  Weight: 45.35 kg

DRUGS (5)
  1. XYNTHA [Suspect]
     Indication: PAIN
     Dosage: 2020 UNK, EVERY OTHER DAY
     Route: 042
     Dates: start: 20140404, end: 201404
  2. XYNTHA [Suspect]
     Indication: HAEMOPHILIA
     Dosage: 2020 UNK, 1X/DAY
     Route: 042
     Dates: start: 201404, end: 201404
  3. XYNTHA [Suspect]
     Dosage: 2020 UNK, 2X/DAY
     Route: 042
     Dates: start: 201404, end: 201404
  4. XYNTHA [Suspect]
     Dosage: 2020 UNK, 1X/DAY
     Route: 042
     Dates: start: 201404
  5. XYNTHA [Suspect]
     Dosage: UNK

REACTIONS (3)
  - Haemarthrosis [Unknown]
  - Haemorrhage [Unknown]
  - Drug ineffective [Unknown]
